FAERS Safety Report 5272330-5 (Version None)
Quarter: 2007Q1

REPORT INFORMATION
  Report Type: 
  Country: None (occurrence: None)
  Receive Date: 20070320
  Receipt Date: 20070320
  Transmission Date: 20070707
  Serious: Yes (Hospitalization)
  Sender: FDA-Public Use
  Company Number: None

PATIENT
  Age: 52 Year
  Sex: Male
  Weight: 66.5 kg

DRUGS (2)
  1. GEMCITABINE HCL [Suspect]
     Indication: NASOPHARYNGEAL CANCER
     Dosage: 1710 MG D1 + D8 IV
     Route: 042
     Dates: start: 20070227
  2. PS341 [Suspect]
     Dosage: 2.2MG D1, D4, D8, D11 IV
     Route: 042
     Dates: start: 20070309

REACTIONS (3)
  - PLEURAL EFFUSION [None]
  - UPPER RESPIRATORY TRACT INFECTION [None]
  - WHITE BLOOD CELL COUNT INCREASED [None]
